FAERS Safety Report 8942260 (Version 1)
Quarter: 2012Q4

REPORT INFORMATION
  Report Type: Spontaneous
  Country: US (occurrence: None)
  Receive Date: 20121129
  Receipt Date: 20121129
  Transmission Date: 20130627
  Serious: No
  Sender: FDA-Public Use
  Company Number: None

PATIENT
  Sex: Male
  Weight: 114 kg

DRUGS (2)
  1. IRINOTECAN [Suspect]
  2. ELOXATIN [Suspect]

REACTIONS (1)
  - Dyspnoea [None]
